FAERS Safety Report 14542840 (Version 1)
Quarter: 2018Q1

REPORT INFORMATION
  Report Type: Spontaneous
  Country: US (occurrence: US)
  Receive Date: 20180216
  Receipt Date: 20180216
  Transmission Date: 20180509
  Serious: Yes (Life-Threatening, Other)
  Sender: FDA-Public Use
  Company Number: US-OTSUKA-DJ201408608

PATIENT

DRUGS (2)
  1. ABILIFY [Suspect]
     Active Substance: ARIPIPRAZOLE
     Indication: DEPRESSION
     Route: 048
  2. AMLODIPINE [Suspect]
     Active Substance: AMLODIPINE BESYLATE
     Indication: HYPERTENSION
     Route: 048

REACTIONS (8)
  - Asthma [Unknown]
  - Cerebrovascular accident [Unknown]
  - Neoplasm [Unknown]
  - Hypersensitivity [Unknown]
  - Skin papilloma [Unknown]
  - Weight increased [Unknown]
  - Acute kidney injury [Unknown]
  - Pneumonia [Unknown]
